FAERS Safety Report 4820250-X (Version None)
Quarter: 2005Q4

REPORT INFORMATION
  Report Type: 
  Country: None (occurrence: None)
  Receive Date: 20051011
  Receipt Date: 20050628
  Transmission Date: 20060501
  Serious: Yes (Other)
  Sender: FDA-Public Use
  Company Number: ENTC2005-0180

PATIENT
  Age: 81 Year
  Sex: Female

DRUGS (10)
  1. STALEVO 100 [Suspect]
     Dosage: ORAL
     Route: 048
     Dates: start: 20040101
  2. MAGNESIUM [Concomitant]
  3. ASPIRIN [Concomitant]
  4. IMODIUM [Concomitant]
  5. FOLIC ACID [Concomitant]
  6. PLAVIX [Concomitant]
  7. FLORIEF [Concomitant]
  8. PREVACID [Concomitant]
  9. DARIFENACIN HYDROBROMIDE [Concomitant]
  10. STOOL SOFTENERS [Concomitant]

REACTIONS (4)
  - ASTHENIA [None]
  - BLOOD POTASSIUM DECREASED [None]
  - CONDITION AGGRAVATED [None]
  - FATIGUE [None]
